FAERS Safety Report 5852645-X (Version None)
Quarter: 2008Q3

REPORT INFORMATION
  Report Type: 
  Country: None (occurrence: None)
  Receive Date: 20080820
  Receipt Date: 20080820
  Transmission Date: 20090109
  Serious: Yes (Other)
  Sender: FDA-Public Use
  Company Number: None

PATIENT
  Sex: Female
  Weight: 56.246 kg

DRUGS (5)
  1. ENBREL [Suspect]
     Indication: RHEUMATOID ARTHRITIS
     Dosage: 25MG SUBQ 2 TIMES A WEEK
     Route: 058
     Dates: start: 20050301, end: 20080701
  2. LIPITOR [Concomitant]
  3. AMBIEN [Concomitant]
  4. MAXALT-MLT [Concomitant]
  5. TRAMADOL HCL [Concomitant]

REACTIONS (3)
  - CENTRAL NERVOUS SYSTEM LESION [None]
  - DEMYELINATION [None]
  - MULTIPLE SCLEROSIS [None]
